FAERS Safety Report 4399623-8 (Version None)
Quarter: 2004Q3

REPORT INFORMATION
  Report Type: 
  Country: None (occurrence: None)
  Receive Date: 20040716
  Receipt Date: 20040707
  Transmission Date: 20050211
  Serious: Yes (Death, Other)
  Sender: FDA-Public Use
  Company Number: PHBS2004JP09064

PATIENT
  Age: 13 Year
  Sex: Male

DRUGS (6)
  1. NEORAL [Suspect]
     Indication: HISTIOCYTOSIS HAEMATOPHAGIC
     Route: 065
  2. CONDITIONING [Suspect]
     Indication: BONE MARROW TRANSPLANT
     Route: 065
  3. STEROIDS NOS [Concomitant]
     Indication: HISTIOCYTOSIS HAEMATOPHAGIC
  4. GAMMA-GLOBULIN ^BEHRINGWERKE^ [Concomitant]
     Indication: HISTIOCYTOSIS HAEMATOPHAGIC
  5. VP-16 [Suspect]
     Indication: HISTIOCYTOSIS HAEMATOPHAGIC
  6. PLASMAPHERESIS [Concomitant]
     Indication: HISTIOCYTOSIS HAEMATOPHAGIC

REACTIONS (2)
  - MULTI-ORGAN FAILURE [None]
  - TOXIC INDUCED ENCEPHALOPATHY [None]
